FAERS Safety Report 5887449-5 (Version None)
Quarter: 2008Q3

REPORT INFORMATION
  Report Type: 
  Country: None (occurrence: None)
  Receive Date: 20080915
  Receipt Date: 20080904
  Transmission Date: 20090109
  Serious: Yes (Hospitalization)
  Sender: FDA-Public Use
  Company Number: 2008BI012124

PATIENT
  Age: 68 Year
  Sex: Female

DRUGS (16)
  1. AVONEX [Suspect]
     Indication: MULTIPLE SCLEROSIS
     Dosage: 30 UG QW IM
     Route: 030
     Dates: start: 19960101, end: 20080401
  2. MECLIZINE [Concomitant]
  3. DARVOCET [Concomitant]
  4. AMBIEN [Concomitant]
  5. EFFEXOR [Concomitant]
  6. VYTORIN [Concomitant]
  7. REQUIP [Concomitant]
  8. LORAZEPAM [Concomitant]
  9. FLUCONAZOLE [Concomitant]
  10. ARICEPT [Concomitant]
  11. PREDNISONE [Concomitant]
  12. ATIVAN [Concomitant]
  13. ANTIVERT [Concomitant]
  14. DILTIAZEM HCL [Concomitant]
  15. POTASSIUM CHLORIDE [Concomitant]
  16. METOPROLOL [Concomitant]

REACTIONS (11)
  - ATRIAL FIBRILLATION [None]
  - BILE DUCT OBSTRUCTION [None]
  - BILE DUCT STENOSIS [None]
  - BILE DUCT STONE [None]
  - BLOOD POTASSIUM DECREASED [None]
  - CHOLECYSTITIS ACUTE [None]
  - CHOLECYSTITIS CHRONIC [None]
  - CHOLELITHIASIS [None]
  - CHROMATURIA [None]
  - NAUSEA [None]
  - PALPITATIONS [None]
